FAERS Safety Report 26046577 (Version 1)
Quarter: 2025Q4

REPORT INFORMATION
  Report Type: Spontaneous
  Country: EU (occurrence: EU)
  Receive Date: 20251114
  Receipt Date: 20251114
  Transmission Date: 20260118
  Serious: Yes (Hospitalization, Congenital Anomaly)
  Sender: TEVA
  Company Number: EU-EMB-M202404384-1

PATIENT
  Sex: Male

DRUGS (3)
  1. ESCITALOPRAM [Suspect]
     Active Substance: ESCITALOPRAM OXALATE
     Indication: Mental disorder
     Route: 064
     Dates: start: 202311, end: 202405
  2. PERTUSSIS VACCINE [Concomitant]
     Active Substance: PERTUSSIS VACCINE
     Indication: Immunisation
     Route: 064
     Dates: start: 202406, end: 202406
  3. BUDESONIDE [Suspect]
     Active Substance: BUDESONIDE
     Indication: Eosinophilic oesophagitis
     Dosage: INITIALLY 1 MG/D, POSSIBLY CHANGED TO 0.5 MG/D IN THE COURSE OF PREGNANCY
     Route: 064
     Dates: start: 202311, end: 202408

REACTIONS (2)
  - Talipes [Recovered/Resolved]
  - Foetal exposure during pregnancy [Unknown]

NARRATIVE: CASE EVENT DATE: 20240801
